FAERS Safety Report 8562418-5 (Version None)
Quarter: 2012Q3

REPORT INFORMATION
  Report Type: 
  Country: None (occurrence: None)
  Receive Date: 20120802
  Receipt Date: 20120703
  Transmission Date: 20120928
  Serious: No
  Sender: FDA-Public Use
  Company Number: US-AMGEN-USASP2011065137

PATIENT
  Age: 49 Year
  Sex: Male
  Weight: 65.306 kg

DRUGS (1)
  1. ENBREL [Suspect]
     Indication: PSORIATIC ARTHROPATHY
     Dosage: 50 MG, QWK
     Route: 058
     Dates: start: 20110501, end: 20120601

REACTIONS (3)
  - ARTHRALGIA [None]
  - ARTHROPOD BITE [None]
  - MOBILITY DECREASED [None]
